FAERS Safety Report 24772469 (Version 1)
Quarter: 2024Q4

REPORT INFORMATION
  Report Type: Spontaneous
  Country: US (occurrence: US)
  Receive Date: 20241224
  Receipt Date: 20241224
  Transmission Date: 20250115
  Serious: No
  Sender: SAPTALIS PHARMACEUTICALS LLC
  Company Number: US-Saptalis Pharmaceuticals LLC-2167722

PATIENT
  Age: 76 Year
  Sex: Male

DRUGS (1)
  1. TRIAMCINOLONE ACETONIDE [Suspect]
     Active Substance: TRIAMCINOLONE ACETONIDE

REACTIONS (1)
  - Rash [Unknown]
